FAERS Safety Report 21991977 (Version 1)
Quarter: 2023Q1

REPORT INFORMATION
  Report Type: Spontaneous
  Country: US (occurrence: US)
  Receive Date: 20230214
  Receipt Date: 20230214
  Transmission Date: 20230417
  Serious: Yes (Hospitalization, Other)
  Sender: FDA-Public Use
  Company Number: US-INCYTE CORPORATION-2023IN001408

PATIENT

DRUGS (2)
  1. JAKAFI [Suspect]
     Active Substance: RUXOLITINIB
     Indication: Chronic graft versus host disease
     Dosage: 5 MILLIGRAM, BID
     Route: 065
  2. AXATILIMAB [Suspect]
     Active Substance: AXATILIMAB
     Indication: Chronic graft versus host disease
     Dosage: UNK
     Route: 065

REACTIONS (5)
  - Hypercalcaemia [Recovered/Resolved]
  - Chronic graft versus host disease [Unknown]
  - Blood 1,25-dihydroxycholecalciferol increased [Unknown]
  - Laboratory test abnormal [Unknown]
  - Disease progression [Unknown]
